FAERS Safety Report 9242534 (Version 2)
Quarter: 2013Q2

REPORT INFORMATION
  Report Type: Report from Study
  Country: DE (occurrence: DE)
  Receive Date: 20130419
  Receipt Date: 20130522
  Transmission Date: 20140414
  Serious: Yes (Other)
  Sender: FDA-Public Use
  Company Number: DE-PFIZER INC-2013115841

PATIENT
  Age: 69 Year
  Sex: Male
  Weight: 74.4 kg

DRUGS (10)
  1. IRINOTECAN HCL [Suspect]
     Indication: COLORECTAL CANCER METASTATIC
     Dosage: 135 MG/M2, EVERY 2 WEEKS
     Route: 042
     Dates: start: 20120521, end: 20130315
  2. FLUOROURACIL [Suspect]
     Indication: COLORECTAL CANCER METASTATIC
     Dosage: 300 MG/M2, EVERY 2 WEEKS
     Route: 040
     Dates: start: 20120521, end: 20130315
  3. FLUOROURACIL [Suspect]
     Dosage: 42 H 1800 MG/M2 EVERY 2 WEEKS
     Route: 041
     Dates: start: 20120521, end: 20130315
  4. FOLINIC ACID [Suspect]
     Indication: COLORECTAL CANCER METASTATIC
     Dosage: 300 MG/M2, EVERY 2 WEEKS
     Route: 042
     Dates: start: 20120521, end: 20130315
  5. BEVACIZUMAB [Suspect]
     Indication: COLORECTAL CANCER METASTATIC
     Dosage: 5 MG/KG BODY WEIGHT EVERY 2 WEEKS
     Route: 042
     Dates: start: 20120521, end: 20130315
  6. GLIMEPIRIDE [Concomitant]
     Dosage: 4 MG, 1X/DAY (1-0-0)
     Route: 048
  7. METFORMIN [Concomitant]
     Dosage: 1000 MG, (1-0-1)
     Route: 048
  8. SIMVASTATIN [Concomitant]
     Dosage: 10 MG, 1X/DAY (0-0-1)
     Route: 048
  9. LISINOPRIL [Concomitant]
     Dosage: 10 MG, 1X/DAY (1-0-0)
     Route: 048
  10. INSULIN [Concomitant]
     Dosage: DEPENDING ON BLOOD SUGAR
     Route: 058

REACTIONS (1)
  - Cheilitis [Recovered/Resolved]
